FAERS Safety Report 8849280 (Version 2)
Quarter: 2012Q4

REPORT INFORMATION
  Report Type: 
  Country: US (occurrence: US)
  Receive Date: 20121019
  Receipt Date: 20121107
  Transmission Date: 20130627
  Serious: Yes (Other)
  Sender: FDA-Public Use
  Company Number: US-009507513-1210USA007701

PATIENT
  Age: 66 Year
  Sex: Male

DRUGS (3)
  1. NASONEX [Suspect]
     Dosage: UNK
     Route: 045
  2. NASONEX [Suspect]
     Dosage: UNK
     Dates: start: 20121014
  3. HYDROCHLOROTHIAZIDE (+) LISINOPRIL [Concomitant]

REACTIONS (4)
  - Convulsion [Recovered/Resolved]
  - Fatigue [Recovered/Resolved]
  - Feeling abnormal [Recovered/Resolved]
  - Hyperhidrosis [Recovered/Resolved]
